FAERS Safety Report 19895552 (Version 2)
Quarter: 2021Q4

REPORT INFORMATION
  Report Type: Spontaneous
  Country: US (occurrence: US)
  Receive Date: 20210929
  Receipt Date: 20211004
  Transmission Date: 20220303
  Serious: Yes (Hospitalization)
  Sender: FDA-Public Use
  Company Number: US-SAREPTA THERAPEUTICS INC.-SRP2021-001616

PATIENT
  Age: 6 Year
  Sex: Male

DRUGS (2)
  1. EXONDYS 51 [Suspect]
     Active Substance: ETEPLIRSEN
     Indication: Duchenne muscular dystrophy
     Dosage: 900 MILLIGRAM, WEEKLY
     Route: 042
     Dates: start: 2020, end: 2021
  2. EXONDYS 51 [Suspect]
     Active Substance: ETEPLIRSEN
     Dosage: 900 MILLIGRAM, WEEKLY
     Route: 042
     Dates: start: 20210807, end: 202108

REACTIONS (12)
  - Post procedural haemorrhage [Unknown]
  - Malaise [Recovered/Resolved]
  - Pulse abnormal [Recovered/Resolved]
  - Nausea [Unknown]
  - Abdominal pain upper [Unknown]
  - Tremor [Unknown]
  - Feeling cold [Unknown]
  - Pallor [Unknown]
  - Cyanosis [Unknown]
  - Fatigue [Unknown]
  - Pyrexia [Recovered/Resolved]
  - Vomiting [Recovered/Resolved]

NARRATIVE: CASE EVENT DATE: 20210101
